FAERS Safety Report 21970723 (Version 2)
Quarter: 2023Q1

REPORT INFORMATION
  Report Type: Spontaneous
  Country: NO (occurrence: NO)
  Receive Date: 20230209
  Receipt Date: 20230224
  Transmission Date: 20230417
  Serious: Yes (Other)
  Sender: FDA-Public Use
  Company Number: NO-AMGEN-NORSP2023020371

PATIENT
  Age: 39 Year
  Sex: Male

DRUGS (6)
  1. DARBEPOETIN ALFA [Suspect]
     Active Substance: DARBEPOETIN ALFA
     Indication: Anaemia
     Dosage: UNK
     Route: 065
  2. TACROLIMUS [Concomitant]
     Active Substance: TACROLIMUS
     Dosage: ADJUSTED TO MAINTAIN TROUGH LEVELS BETWEEN 10 AND 12 NG/ML FOR FIRST 8 WEEKS
  3. TACROLIMUS [Concomitant]
     Active Substance: TACROLIMUS
     Dosage: 6-10 NG/ML
  4. MYCOPHENOLATE MOFETIL [Concomitant]
     Active Substance: MYCOPHENOLATE MOFETIL
     Dosage: 1 GRAM, BID
     Route: 048
  5. MYCOPHENOLATE MOFETIL [Concomitant]
     Active Substance: MYCOPHENOLATE MOFETIL
     Dosage: DOSE WAS EITHER REDUCED OR PAUSED
  6. MYCOPHENOLATE MOFETIL [Concomitant]
     Active Substance: MYCOPHENOLATE MOFETIL
     Dosage: 750 MILLIGRAM, BID
     Route: 048

REACTIONS (3)
  - Aplasia pure red cell [Recovering/Resolving]
  - Therapeutic product effect incomplete [Unknown]
  - Parvovirus B19 infection [Recovered/Resolved]
